FAERS Safety Report 10608988 (Version 1)
Quarter: 2014Q4

REPORT INFORMATION
  Report Type: Spontaneous
  Country: IT (occurrence: IT)
  Receive Date: 20141125
  Receipt Date: 20141125
  Transmission Date: 20150529
  Serious: Yes (Other)
  Sender: FDA-Public Use
  Company Number: PHHY2014IT151544

PATIENT
  Age: 56 Year
  Sex: Male

DRUGS (7)
  1. DEFLAN [Concomitant]
     Active Substance: DEFLAZACORT
  2. LANSOPRAZOLE. [Concomitant]
     Active Substance: LANSOPRAZOLE
  3. DOXAZOSINE [Concomitant]
     Active Substance: DOXAZOSIN MESYLATE
  4. METHOTREXATE [Suspect]
     Active Substance: METHOTREXATE
     Indication: RHEUMATOID ARTHRITIS
     Dosage: 10 MG, QW
     Route: 030
     Dates: start: 20130616, end: 20140916
  5. CLOPIDOGREL [Concomitant]
     Active Substance: CLOPIDOGREL BISULFATE
  6. SALAZOPYRIN EN-TABS. [Suspect]
     Active Substance: SULFASALAZINE
     Indication: RHEUMATOID ARTHRITIS
     Dosage: 1000 MG, QD
     Route: 048
     Dates: start: 20130616, end: 20140916
  7. DEURSIL [Concomitant]
     Active Substance: URSODIOL

REACTIONS (1)
  - Pleurisy [Not Recovered/Not Resolved]

NARRATIVE: CASE EVENT DATE: 20140916
